FAERS Safety Report 7612372-5 (Version None)
Quarter: 2011Q3

REPORT INFORMATION
  Report Type: 
  Country: None (occurrence: None)
  Receive Date: 20110716
  Receipt Date: 20110711
  Transmission Date: 20111222
  Serious: Yes (Death, Life-Threatening, Hospitalization, Other)
  Sender: FDA-Public Use
  Company Number: US-ASTRAZENECA-2011SE37955

PATIENT
  Age: 58 Year
  Sex: Male

DRUGS (28)
  1. TYLENOL-500 [Concomitant]
     Indication: PAIN
     Dosage: 500MG TO 1000MG Q4H PRN
  2. MIRALAX [Concomitant]
     Indication: CONSTIPATION
     Dosage: IN 8 OZ WATER Q2-4H PRN
  3. ZOFRAN [Concomitant]
     Indication: NAUSEA
     Dosage: Q6H PRN
  4. LAXATIVE [Concomitant]
     Indication: CONSTIPATION
     Dosage: 1-2 TABS Q4H
     Route: 048
  5. VISCADOL [Concomitant]
     Indication: CONSTIPATION
     Dosage: 1-3 TAB PRN
     Route: 048
  6. STOOL SOFTENER [Concomitant]
     Indication: CONSTIPATION
  7. MULTI-VITAMIN [Concomitant]
     Route: 048
     Dates: end: 20101117
  8. KLONOPIN [Concomitant]
     Indication: ANXIETY
     Route: 048
     Dates: start: 20100504, end: 20101117
  9. SEROQUEL [Suspect]
     Indication: SLEEP DISORDER
     Route: 048
     Dates: start: 20040101, end: 20101105
  10. SEROQUEL [Suspect]
     Route: 048
  11. MEGACE [Concomitant]
     Route: 048
     Dates: end: 20101117
  12. PREVACID [Concomitant]
     Route: 048
     Dates: end: 20101117
  13. DEXAMETHASONE [Concomitant]
     Route: 048
     Dates: end: 20101117
  14. SEROQUEL [Suspect]
     Indication: DEPRESSION
     Route: 048
     Dates: start: 20040101, end: 20101105
  15. OXYCODONE HCL [Concomitant]
     Indication: PAIN
     Dosage: Q4-6H PRN
  16. TYLENOL-500 [Concomitant]
     Indication: PYREXIA
     Dosage: 500MG TO 1000MG Q4H PRN
  17. ASPIRIN [Concomitant]
     Route: 048
     Dates: end: 20101117
  18. MORPHINE [Concomitant]
     Indication: PAIN
     Route: 048
     Dates: end: 20101117
  19. XANAX [Concomitant]
     Indication: ANXIETY
     Route: 048
     Dates: start: 20090522, end: 20100501
  20. MORPHINE [Concomitant]
     Route: 048
     Dates: end: 20101117
  21. DILANTIN [Concomitant]
     Route: 048
     Dates: end: 20101117
  22. SEROQUEL [Suspect]
     Route: 048
  23. PLAVIX [Concomitant]
     Route: 048
     Dates: end: 20101117
  24. BENZOTROPAMINE [Concomitant]
     Route: 048
     Dates: end: 20101117
  25. LACTULOSE [Concomitant]
     Indication: CONSTIPATION
     Dosage: IN WATER Q2-4H PRN
  26. VENTOLIN HFA [Concomitant]
     Route: 055
     Dates: end: 20101117
  27. ZOFRAN [Concomitant]
     Indication: VOMITING
     Dosage: Q6H PRN
  28. NITROGLYCERIN [Concomitant]
     Indication: CHEST PAIN
     Dosage: 0.4MG EVERY 5 MIN PRN CHEST PAIN X 3 DOSES
     Route: 060

REACTIONS (11)
  - METASTASES TO KIDNEY [None]
  - SPINAL FRACTURE [None]
  - METASTASES TO BONE [None]
  - RADIOTHERAPY [None]
  - TERMINAL STATE [None]
  - CHEMOTHERAPY [None]
  - METASTASES TO LIVER [None]
  - METASTASES TO CENTRAL NERVOUS SYSTEM [None]
  - METASTASES TO GALLBLADDER [None]
  - ADENOCARCINOMA [None]
  - METASTASES TO PANCREAS [None]
